FAERS Safety Report 10061520 (Version 1)
Quarter: 2014Q2

REPORT INFORMATION
  Report Type: Spontaneous
  Country: US (occurrence: US)
  Receive Date: 20140407
  Receipt Date: 20140407
  Transmission Date: 20141212
  Serious: Yes (Life-Threatening)
  Sender: FDA-Public Use
  Company Number: US-ROCHE-1374075

PATIENT
  Sex: Female

DRUGS (3)
  1. ROCEPHIN [Suspect]
     Indication: LOCAL SWELLING
     Route: 042
  2. ROCEPHIN [Suspect]
     Indication: URINARY TRACT INFECTION
  3. COMPAZINE [Concomitant]

REACTIONS (3)
  - Loss of consciousness [Recovered/Resolved]
  - Tinnitus [Recovered/Resolved]
  - Skin burning sensation [Recovered/Resolved]
